FAERS Safety Report 7526052-8 (Version None)
Quarter: 2011Q2

REPORT INFORMATION
  Report Type: 
  Country: None (occurrence: None)
  Receive Date: 20110606
  Receipt Date: 20110525
  Transmission Date: 20111010
  Serious: Yes (Other)
  Sender: FDA-Public Use
  Company Number: JP-ACTELION-A-JP2009-27144

PATIENT
  Sex: Female
  Weight: 29 kg

DRUGS (17)
  1. CLOTIAZEPAM [Concomitant]
  2. THEOPHYLLINE [Concomitant]
  3. TRACLEER [Suspect]
     Dosage: 31.25 MG, BID
     Route: 048
     Dates: start: 20090720, end: 20090918
  4. TRACLEER [Suspect]
     Dosage: 31.25 MG, BID
     Route: 048
     Dates: start: 20090920
  5. AMBROXOL HYDROCHLORIDE [Concomitant]
  6. ANTIBIOTICS-RESISTANT LACTIC ACID BACTERIAE [Concomitant]
  7. SALBUTAMOL SULFATE [Concomitant]
  8. DIFLUCORTOLONE VALERATE [Concomitant]
  9. TIQUIZIUM BROMIDE [Concomitant]
  10. TRACLEER [Suspect]
     Indication: PULMONARY HYPERTENSION
     Dosage: 31.25 MG, TID
     Route: 048
     Dates: start: 20090718, end: 20090719
  11. TRACLEER [Suspect]
     Dosage: 31.25 MG, BID
     Route: 048
     Dates: start: 20090604, end: 20090717
  12. FLUTICASONE PROPIONATE [Concomitant]
  13. SODIUM PICOSULFATE [Concomitant]
  14. OXYGEN [Concomitant]
  15. BERAPROST SODIUM [Suspect]
     Dosage: UNK
     Dates: start: 20090918, end: 20090920
  16. CLARITHROMYCIN [Concomitant]
  17. ETIZOLAM [Concomitant]

REACTIONS (7)
  - BACK PAIN [None]
  - CARDIAC FAILURE [None]
  - HEADACHE [None]
  - DYSPNOEA [None]
  - RESTLESS LEGS SYNDROME [None]
  - ARTHRALGIA [None]
  - DELIRIUM [None]
